FAERS Safety Report 4551710-7 (Version None)
Quarter: 2005Q1

REPORT INFORMATION
  Report Type: 
  Country: None (occurrence: None)
  Receive Date: 20050112
  Receipt Date: 20041227
  Transmission Date: 20050727
  Serious: Yes (Other)
  Sender: FDA-Public Use
  Company Number: TRP_0043_2004

PATIENT
  Age: 53 Year
  Sex: Male
  Weight: 94 kg

DRUGS (3)
  1. RIBASPHERE [Suspect]
     Indication: HEPATITIS C
     Dosage: 600 MG BID PO
     Route: 048
     Dates: start: 20040908, end: 20041006
  2. INFERGEN [Suspect]
     Indication: HEPATITIS C
     Dosage: 15 MCG QDAY SC
     Route: 058
     Dates: start: 20040908, end: 20041006
  3. ACIPHEX [Concomitant]

REACTIONS (11)
  - ANAEMIA [None]
  - ARTHRALGIA [None]
  - CHEST PAIN [None]
  - DILATATION ATRIAL [None]
  - DILATATION VENTRICULAR [None]
  - DYSPNOEA EXERTIONAL [None]
  - MYALGIA [None]
  - NAUSEA [None]
  - NEUTROPENIA [None]
  - PULMONARY HYPERTENSION [None]
  - RIGHT VENTRICULAR SYSTOLIC PRESSURE INCREASED [None]
